FAERS Safety Report 5350824-1 (Version None)
Quarter: 2007Q2

REPORT INFORMATION
  Report Type: 
  Country: None (occurrence: None)
  Receive Date: 20070608
  Receipt Date: 20070530
  Transmission Date: 20071010
  Serious: Yes (Hospitalization, Disabling)
  Sender: FDA-Public Use
  Company Number: BR-AVENTIS-200715024GDDC

PATIENT
  Sex: Male
  Weight: 79 kg

DRUGS (10)
  1. LANTUS [Suspect]
     Route: 058
     Dates: start: 20030101
  2. LANTUS [Suspect]
     Route: 058
     Dates: start: 20070528
  3. LANTUS [Suspect]
     Route: 058
     Dates: start: 20070529
  4. OPTIPEN (INSULIN PUMP) [Suspect]
  5. DIAMICRON [Concomitant]
     Route: 048
     Dates: start: 20020101
  6. GLIFAGE [Concomitant]
     Route: 048
     Dates: start: 20040101
  7. AVANDAMET [Concomitant]
     Dosage: DOSE QUANTITY: 4.5
     Route: 048
     Dates: start: 20060101
  8. HUMALOG [Concomitant]
     Dosage: DOSE: DEPENDS ON GLYCEMIA
     Dates: start: 20060101
  9. SOMALGIN                           /00002701/ [Concomitant]
     Indication: HYPERTENSION
     Dosage: DOSE QUANTITY: 1
     Route: 048
     Dates: start: 20060101
  10. NORVASC [Concomitant]
     Indication: HYPERTENSION
     Route: 048
     Dates: start: 20020101

REACTIONS (6)
  - HYPERGLYCAEMIA [None]
  - HYPERHIDROSIS [None]
  - HYPOGLYCAEMIA [None]
  - PAIN IN EXTREMITY [None]
  - PHARMACEUTICAL PRODUCT COMPLAINT [None]
  - VISION BLURRED [None]
